FAERS Safety Report 8927951 (Version 1)
Quarter: 2012Q4

REPORT INFORMATION
  Report Type: Spontaneous
  Country: US (occurrence: None)
  Receive Date: 20121126
  Receipt Date: 20121126
  Transmission Date: 20130627
  Serious: Yes (Other)
  Sender: FDA-Public Use
  Company Number: None

PATIENT
  Age: 52 Year
  Sex: Male
  Weight: 83.92 kg

DRUGS (1)
  1. CIPROFLOXACIN 500 MG BAY [Suspect]
     Indication: URINARY INFECTION
     Route: 048
     Dates: start: 20121018, end: 20121027

REACTIONS (2)
  - Tendon rupture [None]
  - Tendonitis [None]
